FAERS Safety Report 14393982 (Version 1)
Quarter: 2018Q1

REPORT INFORMATION
  Report Type: Spontaneous
  Country: US (occurrence: US)
  Receive Date: 20180116
  Receipt Date: 20180116
  Transmission Date: 20180509
  Serious: No
  Sender: FDA-Public Use
  Company Number: US-REGENERON PHARMACEUTICALS, INC.-2017-10631

PATIENT

DRUGS (20)
  1. EYLEA [Suspect]
     Active Substance: AFLIBERCEPT
     Indication: NEOVASCULAR AGE-RELATED MACULAR DEGENERATION
     Dosage: 0.5 ML, RIGHT EYE, EVERY 1-3 MONTHS
     Route: 031
     Dates: start: 20160121
  2. EYLEA [Suspect]
     Active Substance: AFLIBERCEPT
     Dosage: 0.5 ML, RIGHT EYE, EVERY 1-3 MONTHS
     Route: 031
     Dates: start: 201602, end: 201602
  3. EYLEA [Suspect]
     Active Substance: AFLIBERCEPT
     Dosage: 0.5 ML, RIGHT EYE, EVERY 1-3 MONTHS
     Route: 031
     Dates: start: 201602, end: 201602
  4. ATORVASTATIN [Concomitant]
     Active Substance: ATORVASTATIN
     Indication: PRODUCT USED FOR UNKNOWN INDICATION
  5. EYLEA [Suspect]
     Active Substance: AFLIBERCEPT
     Dosage: 0.5 ML, RIGHT EYE, EVERY 1-3 MONTHS
     Route: 031
     Dates: start: 201605, end: 201605
  6. ASPIRIN. [Concomitant]
     Active Substance: ASPIRIN
     Indication: PRODUCT USED FOR UNKNOWN INDICATION
  7. MODAFINIL. [Concomitant]
     Active Substance: MODAFINIL
     Indication: PRODUCT USED FOR UNKNOWN INDICATION
  8. EYLEA [Suspect]
     Active Substance: AFLIBERCEPT
     Dosage: 0.5 ML, RIGHT EYE, EVERY 1-3 MONTHS
     Route: 031
     Dates: start: 201612, end: 201612
  9. VALSARTAN. [Concomitant]
     Active Substance: VALSARTAN
     Indication: PRODUCT USED FOR UNKNOWN INDICATION
  10. EYLEA [Suspect]
     Active Substance: AFLIBERCEPT
     Dosage: 0.5 ML, RIGHT EYE, EVERY 1-3 MONTHS
     Route: 031
     Dates: start: 201603, end: 201603
  11. EYLEA [Suspect]
     Active Substance: AFLIBERCEPT
     Dosage: 0.5 ML, RIGHT EYE, EVERY 1-3 MONTHS
     Route: 031
     Dates: start: 201607, end: 201607
  12. TOUJEO [Concomitant]
     Active Substance: INSULIN GLARGINE
     Indication: PRODUCT USED FOR UNKNOWN INDICATION
  13. HYDRALAZINE [Concomitant]
     Active Substance: HYDRALAZINE HYDROCHLORIDE
     Indication: PRODUCT USED FOR UNKNOWN INDICATION
  14. GLIMEPIRIDE. [Concomitant]
     Active Substance: GLIMEPIRIDE
     Indication: PRODUCT USED FOR UNKNOWN INDICATION
  15. EYLEA [Suspect]
     Active Substance: AFLIBERCEPT
     Dosage: 0.5 ML, RIGHT EYE, EVERY 1-3 MONTHS
     Route: 031
     Dates: start: 201610, end: 201610
  16. BUMETANIDE. [Concomitant]
     Active Substance: BUMETANIDE
     Indication: PRODUCT USED FOR UNKNOWN INDICATION
  17. GABAPENTIN. [Concomitant]
     Active Substance: GABAPENTIN
     Indication: PRODUCT USED FOR UNKNOWN INDICATION
  18. MACUHEALTH WITH LMZ3 [Concomitant]
     Indication: PRODUCT USED FOR UNKNOWN INDICATION
  19. FLUTICASONE. [Concomitant]
     Active Substance: FLUTICASONE
     Indication: PRODUCT USED FOR UNKNOWN INDICATION
  20. CALCITRIOL. [Concomitant]
     Active Substance: CALCITRIOL
     Indication: PRODUCT USED FOR UNKNOWN INDICATION

REACTIONS (1)
  - Foreign body in eye [Not Recovered/Not Resolved]

NARRATIVE: CASE EVENT DATE: 20160823
